FAERS Safety Report 15240847 (Version 1)
Quarter: 2018Q3

REPORT INFORMATION
  Report Type: Spontaneous
  Country: US (occurrence: US)
  Receive Date: 20180711
  Receipt Date: 20180711
  Transmission Date: 20181010
  Serious: Yes (Other)
  Sender: FDA-Public Use
  Company Number: None

PATIENT
  Age: 15 Year
  Sex: Female
  Weight: 70.65 kg

DRUGS (14)
  1. SINGULAIR [Concomitant]
     Active Substance: MONTELUKAST SODIUM
  2. TOPAMAX [Concomitant]
     Active Substance: TOPIRAMATE
  3. XARELTO [Concomitant]
     Active Substance: RIVAROXABAN
  4. FERROUS SULFATE. [Concomitant]
     Active Substance: FERROUS SULFATE
  5. PSYLLIUM HUSK. [Concomitant]
     Active Substance: PSYLLIUM HUSK
  6. COLACE [Concomitant]
     Active Substance: DOCUSATE SODIUM
  7. GUANFACINE HCL ER 1MG TABLET ACTAVIS [Suspect]
     Active Substance: GUANFACINE HYDROCHLORIDE
     Indication: ANXIETY
     Dosage: ?          QUANTITY:1 TABLET(S);OTHER FREQUENCY:TRIED 9:30PM/AM;?
     Route: 048
     Dates: start: 20180629, end: 20180706
  8. BUSPAR [Concomitant]
     Active Substance: BUSPIRONE HYDROCHLORIDE
  9. NEBULIZER TREATMENT [Concomitant]
  10. GUANFACINE HCL ER 1MG TABLET ACTAVIS [Suspect]
     Active Substance: GUANFACINE HYDROCHLORIDE
     Indication: SLEEP DISORDER THERAPY
     Dosage: ?          QUANTITY:1 TABLET(S);OTHER FREQUENCY:TRIED 9:30PM/AM;?
     Route: 048
     Dates: start: 20180629, end: 20180706
  11. LEXAPRO [Concomitant]
     Active Substance: ESCITALOPRAM OXALATE
  12. MEDROXYPROGESTERONE [Concomitant]
     Active Substance: MEDROXYPROGESTERONE
  13. VITAMIN C [Concomitant]
     Active Substance: ASCORBIC ACID
  14. MUCINEX ER [Concomitant]

REACTIONS (5)
  - Cardiac disorder [None]
  - Psychomotor hyperactivity [None]
  - Somnolence [None]
  - Therapy cessation [None]
  - Fatigue [None]

NARRATIVE: CASE EVENT DATE: 20180629
